FAERS Safety Report 10615502 (Version 1)
Quarter: 2014Q4

REPORT INFORMATION
  Report Type: Spontaneous
  Country: US (occurrence: None)
  Receive Date: 20141125
  Receipt Date: 20141125
  Transmission Date: 20150529
  Serious: Yes (Hospitalization)
  Sender: FDA-Public Use
  Company Number: None

PATIENT
  Age: 66 Year
  Sex: Female
  Weight: 64.5 kg

DRUGS (5)
  1. CYTARABINE. [Suspect]
     Active Substance: CYTARABINE
  2. VINCRISTINE SULFATE. [Suspect]
     Active Substance: VINCRISTINE SULFATE
  3. PROCARBAZINE [Suspect]
     Active Substance: PROCARBAZINE
  4. RITUXIMAB (MOAB C2B8 ANTI CD20, CHIMERIC) [Suspect]
     Active Substance: RITUXIMAB
  5. METHOTREXATE [Suspect]
     Active Substance: METHOTREXATE

REACTIONS (8)
  - Neutropenic colitis [None]
  - Platelet count decreased [None]
  - Body temperature increased [None]
  - Nausea [None]
  - Vomiting [None]
  - Blood pressure decreased [None]
  - Diarrhoea [None]
  - Haemoglobin decreased [None]

NARRATIVE: CASE EVENT DATE: 20141030
